FAERS Safety Report 23042441 (Version 1)
Quarter: 2023Q4

REPORT INFORMATION
  Report Type: Report from Study
  Country: CA (occurrence: CA)
  Receive Date: 20231008
  Receipt Date: 20231008
  Transmission Date: 20240110
  Serious: Yes (Hospitalization, Other)
  Sender: FDA-Public Use
  Company Number: CA-CELLTRION INC.-2023CA019106

PATIENT

DRUGS (1)
  1. RITUXIMAB [Suspect]
     Active Substance: RITUXIMAB
     Indication: Rheumatoid arthritis
     Dosage: 1000 MILLIGRAM
     Route: 042

REACTIONS (8)
  - Limb injury [Recovering/Resolving]
  - Pain in extremity [Recovering/Resolving]
  - Pericarditis [Recovering/Resolving]
  - Blood pressure increased [Recovering/Resolving]
  - Arthralgia [Recovering/Resolving]
  - Anxiety [Recovering/Resolving]
  - Product dispensing error [Recovering/Resolving]
  - Product storage error [Recovering/Resolving]
